FAERS Safety Report 6075318-X (Version None)
Quarter: 2009Q1

REPORT INFORMATION
  Report Type: 
  Country: None (occurrence: None)
  Receive Date: 20090212
  Receipt Date: 20090208
  Transmission Date: 20090719
  Serious: Yes (Death, Life-Threatening)
  Sender: FDA-Public Use
  Company Number: IL-NOVOPROD-283942

PATIENT
  Age: 7 Year
  Sex: Male

DRUGS (1)
  1. NOVOSEVEN [Suspect]
     Indication: HAEMORRHAGE
     Dosage: 1.2 MG, BID
     Dates: start: 20090117

REACTIONS (1)
  - BRAIN DEATH [None]
